FAERS Safety Report 6154068-5 (Version None)
Quarter: 2009Q2

REPORT INFORMATION
  Report Type: 
  Country: None (occurrence: None)
  Receive Date: 20090414
  Receipt Date: 20090331
  Transmission Date: 20091009
  Serious: No
  Sender: FDA-Public Use
  Company Number: GB-ROCHE-486164

PATIENT
  Sex: Female
  Weight: 68 kg

DRUGS (2)
  1. ROACCUTANE [Suspect]
     Indication: DRUG USE FOR UNKNOWN INDICATION
     Route: 065
     Dates: end: 20070126
  2. XENICAL [Concomitant]
     Indication: ACNE
     Dates: end: 20070112

REACTIONS (2)
  - NO ADVERSE EVENT [None]
  - PREGNANCY [None]
